FAERS Safety Report 6546756-3 (Version None)
Quarter: 2010Q1

REPORT INFORMATION
  Report Type: 
  Country: None (occurrence: None)
  Receive Date: 20100122
  Receipt Date: 20100117
  Transmission Date: 20100710
  Serious: Yes (Disabling)
  Sender: FDA-Public Use
  Company Number: CZ-ROCHE-679947

PATIENT
  Sex: Female

DRUGS (3)
  1. BONIVA [Suspect]
     Indication: OSTEOPOROSIS
     Route: 048
  2. LETROX [Concomitant]
     Dosage: FREQUENCY: 1-0-0
  3. CALTRATE [Concomitant]
     Dosage: DRUG NAME: CALCRATE, FREQUENCY: 1-0-1 (IN THE MORNING AND EVENING)

REACTIONS (3)
  - BONE PAIN [None]
  - CHEST PAIN [None]
  - RESPIRATORY DISORDER [None]
